FAERS Safety Report 4556920-0 (Version None)
Quarter: 2005Q1

REPORT INFORMATION
  Report Type: 
  Country: None (occurrence: None)
  Receive Date: 20050118
  Receipt Date: 20050110
  Transmission Date: 20050727
  Serious: Yes (Hospitalization)
  Sender: FDA-Public Use
  Company Number: 2005007568

PATIENT
  Age: 54 Year
  Sex: Male

DRUGS (20)
  1. PREDNISOLONE [Suspect]
     Indication: ILL-DEFINED DISORDER
     Dosage: 10 MG (10 MG, 1 IN 1 D), ORAL
     Route: 048
  2. MYCOPHENOLATE MOFETIL (MYCOPHENOLATE MOFETIL) [Suspect]
     Indication: ILL-DEFINED DISORDER
     Dosage: 500 MG (500 MG, 1 IN 1 D), ORAL
     Route: 048
     Dates: start: 20010101
  3. DARBEPOETIN ALFA (DARBEPOETIN ALFA) [Concomitant]
  4. METOPROLOL SUCCINATE [Concomitant]
  5. AMLODIPINE BESYLATE [Concomitant]
  6. ZOLPIDEM TARTRATE [Concomitant]
  7. FOLACIN (CALCIUM PHOSPHATE, FOLIC ACID) [Concomitant]
  8. ACETAMINOPHEN [Concomitant]
  9. PARENTROVITE (ASCORBIC ACID, NICOTINAMIDE, PYRIDOXINE HYDROCHLORIDE, R [Concomitant]
  10. CYANOCOBALAMIN (CYANOCOBALAMIN) [Concomitant]
  11. CLEMASTINE (CLEMASTINE) [Concomitant]
  12. SODIUM BICARBONATE IN PLASTIC CONTAINER [Concomitant]
  13. QUININE HYDROCHLORIDE (QUININE HYDROCHLORIDE) [Concomitant]
  14. CALCIUM CARBONATE (CALCIUM CARBONATE) [Concomitant]
  15. HEPARIN-FRACTION, SODIUM SALT (HEPARIN-FRACTION, SODIUM SALT) [Concomitant]
  16. ALFACALCIDOL (ALFACALCIDOL) [Concomitant]
  17. LANSOPRAZOLE [Concomitant]
  18. LOPERAMIDE HYDROCHLORIDE [Concomitant]
  19. KETOBEMIDONE (KETOBEMIDONE) [Concomitant]
  20. DOXAZOSIN MESYLATE [Concomitant]

REACTIONS (11)
  - ABSCESS LIMB [None]
  - ABSCESS SOFT TISSUE [None]
  - DIALYSIS [None]
  - FISTULA [None]
  - IMPAIRED HEALING [None]
  - NECROSIS [None]
  - PANCREAS TRANSPLANT [None]
  - RENAL FAILURE [None]
  - RENAL TRANSPLANT [None]
  - VASCULITIS [None]
  - WOUND INFECTION [None]
